FAERS Safety Report 6076000-5 (Version None)
Quarter: 2009Q1

REPORT INFORMATION
  Report Type: 
  Country: None (occurrence: None)
  Receive Date: 20090212
  Receipt Date: 20090202
  Transmission Date: 20090719
  Serious: Yes (Other)
  Sender: FDA-Public Use
  Company Number: US-PFIZER INC-2009165405

PATIENT
  Sex: Male
  Weight: 83.9 kg

DRUGS (1)
  1. FLAGYL [Suspect]
     Indication: PHARYNGITIS
     Dates: start: 20080101, end: 20080101

REACTIONS (8)
  - DYSPHAGIA [None]
  - LYMPHATIC SYSTEM NEOPLASM [None]
  - NON-HODGKIN'S LYMPHOMA [None]
  - OROPHARYNGEAL PLAQUE [None]
  - PAIN [None]
  - PHARYNGITIS [None]
  - SLEEP DISORDER [None]
  - WEIGHT DECREASED [None]
